FAERS Safety Report 4545398-9 (Version None)
Quarter: 2005Q1

REPORT INFORMATION
  Report Type: 
  Country: None (occurrence: None)
  Receive Date: 20050103
  Receipt Date: 20041229
  Transmission Date: 20050727
  Serious: No
  Sender: FDA-Public Use
  Company Number: A01200406527

PATIENT
  Sex: Female

DRUGS (2)
  1. STILNOCT - (ZOLPIDEM TARTRATE) - TABLET - 10 MG / TABLET - 10 MG [Suspect]
     Indication: SLEEP DISORDER
     Dosage: 10 MG OD / 7.5 MG OD ORAL
     Route: 048
     Dates: start: 20020101
  2. BISOPROLOL FUMARATE [Concomitant]

REACTIONS (3)
  - FATIGUE [None]
  - HEPATIC FUNCTION ABNORMAL [None]
  - SLEEP APNOEA SYNDROME [None]
